FAERS Safety Report 18565048 (Version 1)
Quarter: 2020Q4

REPORT INFORMATION
  Report Type: Spontaneous
  Country: US (occurrence: US)
  Receive Date: 20201201
  Receipt Date: 20201201
  Transmission Date: 20210114
  Serious: Yes (Hospitalization, Other)
  Sender: FDA-Public Use
  Company Number: US-MYLANLABS-2020M1097965

PATIENT
  Age: 29 Year
  Sex: Male

DRUGS (1)
  1. OMEPRAZOLE. [Suspect]
     Active Substance: OMEPRAZOLE
     Indication: GASTRITIS
     Dosage: 20 MILLIGRAM, QD INTERMITTENTLY
     Route: 065

REACTIONS (2)
  - Pancreatitis necrotising [Recovering/Resolving]
  - Pancreatic pseudocyst [Not Recovered/Not Resolved]
